FAERS Safety Report 7050647-1 (Version None)
Quarter: 2010Q4

REPORT INFORMATION
  Report Type: 
  Country: None (occurrence: None)
  Receive Date: 20101018
  Receipt Date: 20101013
  Transmission Date: 20110411
  Serious: Yes (Life-Threatening, Hospitalization)
  Sender: FDA-Public Use
  Company Number: DE-MERCK-1009DEU00029

PATIENT
  Age: 73 Year
  Sex: Female

DRUGS (3)
  1. JANUMET [Suspect]
     Indication: TYPE 2 DIABETES MELLITUS
     Route: 048
     Dates: start: 20100607, end: 20100614
  2. HYDROCHLOROTHIAZIDE AND VALSARTAN [Suspect]
     Indication: HYPERTENSION
     Route: 048
     Dates: end: 20100614
  3. ALISKIREN FUMARATE [Suspect]
     Indication: HYPERTENSION
     Route: 048
     Dates: start: 20100607, end: 20100614

REACTIONS (5)
  - INFECTION [None]
  - LACTIC ACIDOSIS [None]
  - RENAL FAILURE ACUTE [None]
  - TACHYARRHYTHMIA [None]
  - THROMBOCYTOPENIA [None]
